FAERS Safety Report 21088602 (Version 1)
Quarter: 2022Q3

REPORT INFORMATION
  Report Type: Spontaneous
  Country: US (occurrence: None)
  Receive Date: 20220715
  Receipt Date: 20220715
  Transmission Date: 20221027
  Serious: No
  Sender: FDA-Public Use
  Company Number: None

PATIENT
  Age: 38 Year
  Sex: Male

DRUGS (1)
  1. TALTZ [Suspect]
     Active Substance: IXEKIZUMAB
     Indication: Psoriasis
     Dosage: OTHER QUANTITY : 80MG (1 PEN); SC AT WEEK 12 THEN EVERY 4 WEEKS?FREQUENCY : AS DIRECTED;?
     Route: 058
     Dates: start: 202107

REACTIONS (1)
  - COVID-19 [None]
